FAERS Safety Report 8560209 (Version 2)
Quarter: 2012Q4

REPORT INFORMATION
  Report Type: 
  Country: US (occurrence: US)
  Receive Date: 20120514
  Receipt Date: 20121029
  Transmission Date: 20130627
  Serious: Yes (Other)
  Sender: FDA-Public Use
  Company Number: US-PFIZER INC-2012114429

PATIENT
  Age: 34 Year
  Sex: Female

DRUGS (6)
  1. SIMVASTATIN [Concomitant]
     Indication: HIGH CHOLESTEROL
     Dosage: UNK
     Dates: start: 2005
  2. SYNTHROID [Concomitant]
     Indication: THYROID DISORDER
     Dosage: UNK
     Dates: start: 2006
  3. CHANTIX [Suspect]
     Indication: SMOKING CESSATION THERAPY
     Dosage: 1 mg, 2x/day
     Dates: start: 20070207, end: 20110830
  4. CHANTIX [Suspect]
     Dosage: UNK
     Dates: start: 201103
  5. HUMALOG [Concomitant]
     Indication: DIABETES
     Dosage: UNK
     Dates: start: 1993
  6. PROMETHAZINE [Concomitant]
     Indication: GASTROPARESIS
     Dosage: UNK
     Dates: start: 2003

REACTIONS (10)
  - Convulsion [Not Recovered/Not Resolved]
  - Epilepsy [Not Recovered/Not Resolved]
  - Hallucination [Unknown]
  - Depression [Not Recovered/Not Resolved]
  - Aggression [Not Recovered/Not Resolved]
  - Nightmare [Not Recovered/Not Resolved]
  - Amnesia [Unknown]
  - Syncope [Not Recovered/Not Resolved]
  - Impaired driving ability [Not Recovered/Not Resolved]
  - Migraine [Unknown]
